FAERS Safety Report 5116661-8 (Version None)
Quarter: 2006Q3

REPORT INFORMATION
  Report Type: 
  Country: None (occurrence: None)
  Receive Date: 20060928
  Receipt Date: 20060826
  Transmission Date: 20061208
  Serious: Yes (Hospitalization, Disabling)
  Sender: FDA-Public Use
  Company Number: JP-JPN-A200603362

PATIENT
  Age: 96 Year
  Sex: Female
  Weight: 33 kg

DRUGS (1)
  1. VALTREX [Suspect]
     Indication: HERPES ZOSTER
     Dosage: 1000MG THREE TIMES PER DAY
     Route: 048
     Dates: start: 20060819, end: 20060823

REACTIONS (11)
  - ABDOMINAL PAIN [None]
  - BLOOD CREATININE INCREASED [None]
  - BLOOD POTASSIUM INCREASED [None]
  - BLOOD UREA INCREASED [None]
  - CONVULSION [None]
  - DEPRESSED LEVEL OF CONSCIOUSNESS [None]
  - DIVERTICULITIS [None]
  - ILL-DEFINED DISORDER [None]
  - ORAL INTAKE REDUCED [None]
  - RENAL FAILURE [None]
  - URINE OUTPUT DECREASED [None]
